FAERS Safety Report 8492358-1 (Version None)
Quarter: 2012Q2

REPORT INFORMATION
  Report Type: 
  Country: None (occurrence: None)
  Receive Date: 20120629
  Receipt Date: 20120629
  Transmission Date: 20120825
  Serious: No
  Sender: FDA-Public Use
  Company Number: None

PATIENT
  Sex: Female

DRUGS (19)
  1. REVLIMID [Suspect]
     Indication: MULTIPLE MYELOMA
     Dosage: 15MG QOD X14D ORAL
     Route: 048
     Dates: start: 20101112
  2. INSULIN GLARGINE [Concomitant]
  3. PROCHLORPERAZINE MALEATE [Concomitant]
  4. NORTRIPTYLINE HCL [Concomitant]
  5. CYANOCOBALAMIN [Concomitant]
  6. INSULIN ASPART [Concomitant]
  7. ERGOCALCIFEROL [Concomitant]
  8. ASPIRIN [Concomitant]
  9. CALCITRIOL [Concomitant]
  10. VIT D2 [Concomitant]
  11. LORATADINE AND PSEUDOEPHEDRINE SULFATE [Concomitant]
  12. LENALIDOMIDE [Concomitant]
  13. COLECALCIFEROL [Concomitant]
  14. HYDROCORTISONE [Concomitant]
  15. GABAPENTIN [Concomitant]
  16. HYDROCODONE BITARTRATE + ACETAMINOPHEN [Concomitant]
  17. DEXAMETHASONE SODIUM POSPHATE [Concomitant]
  18. VITAMIN D [Concomitant]
  19. CETIRIZINE HCL [Concomitant]

REACTIONS (3)
  - DIARRHOEA [None]
  - RASH [None]
  - NEUTROPENIA [None]
